FAERS Safety Report 5901976-3 (Version None)
Quarter: 2008Q3

REPORT INFORMATION
  Report Type: 
  Country: None (occurrence: None)
  Receive Date: 20080925
  Receipt Date: 20080915
  Transmission Date: 20090109
  Serious: No
  Sender: FDA-Public Use
  Company Number: DSU-2008-01459

PATIENT
  Sex: Male
  Weight: 69.4003 kg

DRUGS (1)
  1. WELCHOL [Suspect]
     Indication: HYPERLIPIDAEMIA
     Dosage: 3750 MG (1875 MG, BID) PER ORAL
     Route: 048
     Dates: start: 20060101

REACTIONS (1)
  - DYSPHAGIA [None]
